FAERS Safety Report 18206899 (Version 2)
Quarter: 2020Q3

REPORT INFORMATION
  Report Type: Spontaneous
  Country: US (occurrence: US)
  Receive Date: 20200828
  Receipt Date: 20200910
  Transmission Date: 20201103
  Serious: Yes (Hospitalization, Other)
  Sender: FDA-Public Use
  Company Number: US-BAYER-2020-180672

PATIENT
  Age: 86 Year
  Sex: Female

DRUGS (6)
  1. INTERFERON BETA ? 1B [Suspect]
     Active Substance: INTERFERON BETA-1B
     Indication: CHRONIC MYELOID LEUKAEMIA
  2. GLEEVEC [Suspect]
     Active Substance: IMATINIB MESYLATE
     Indication: CHRONIC MYELOID LEUKAEMIA
     Dosage: UNK
     Route: 065
  3. BOSULIF [Suspect]
     Active Substance: BOSUTINIB MONOHYDRATE
     Indication: CHRONIC MYELOID LEUKAEMIA
     Dosage: 1 DF, QD
     Route: 065
  4. SPRYCEL [Suspect]
     Active Substance: DASATINIB
     Indication: CHRONIC MYELOID LEUKAEMIA
     Dosage: UNK
     Route: 065
  5. TASIGNA [Suspect]
     Active Substance: NILOTINIB
     Indication: CHRONIC MYELOID LEUKAEMIA
     Dosage: UNK
     Route: 065
  6. BOSULIF [Suspect]
     Active Substance: BOSUTINIB MONOHYDRATE
     Indication: CHRONIC MYELOID LEUKAEMIA
     Dosage: 2 DF, BID
     Route: 065

REACTIONS (17)
  - Hypophagia [None]
  - Dyspnoea [Unknown]
  - Headache [None]
  - Fatigue [None]
  - Pleural effusion [None]
  - Pericardial effusion [None]
  - Peripheral swelling [None]
  - Asthenia [None]
  - Drug ineffective [None]
  - Leukaemia [None]
  - Gastrooesophageal reflux disease [None]
  - Weight decreased [None]
  - Gait disturbance [None]
  - Oesophageal ulcer haemorrhage [None]
  - Coagulopathy [None]
  - Illness [None]
  - Product use in unapproved indication [None]
